FAERS Safety Report 12379119 (Version 1)
Quarter: 2016Q2

REPORT INFORMATION
  Report Type: Spontaneous
  Country: GR (occurrence: GR)
  Receive Date: 20160517
  Receipt Date: 20160517
  Transmission Date: 20160815
  Serious: Yes (Other)
  Sender: FDA-Public Use
  Company Number: GR-ALLERGAN-1656731US

PATIENT
  Sex: Male

DRUGS (3)
  1. GANFORT [Suspect]
     Active Substance: BIMATOPROST\TIMOLOL
     Indication: INTRAOCULAR PRESSURE TEST
     Route: 047
  2. AZOPT [Concomitant]
     Active Substance: BRINZOLAMIDE
     Indication: INTRAOCULAR PRESSURE TEST
  3. NEVANAC [Concomitant]
     Active Substance: NEPAFENAC
     Indication: CYSTOID MACULAR OEDEMA

REACTIONS (2)
  - Intraocular pressure increased [Recovering/Resolving]
  - Cystoid macular oedema [Unknown]
